FAERS Safety Report 13448386 (Version 2)
Quarter: 2017Q2

REPORT INFORMATION
  Report Type: Report from Study
  Country: FR (occurrence: FR)
  Receive Date: 20170417
  Receipt Date: 20170421
  Transmission Date: 20170830
  Serious: Yes (Death, Hospitalization)
  Sender: FDA-Public Use
  Company Number: FR-JNJFOC-20160313823

PATIENT
  Age: 86 Year
  Sex: Female
  Weight: 50 kg

DRUGS (3)
  1. CORTISONE [Concomitant]
     Active Substance: CORTISONE\HYDROCORTISONE
     Route: 065
  2. SIMPONI [Suspect]
     Active Substance: GOLIMUMAB
     Indication: RHEUMATOID ARTHRITIS
     Route: 058
     Dates: start: 20151125, end: 201603
  3. PARACETAMOL [Concomitant]
     Active Substance: ACETAMINOPHEN
     Route: 065

REACTIONS (3)
  - Drug ineffective [Unknown]
  - Pancreatic carcinoma [Fatal]
  - Pruritus [Not Recovered/Not Resolved]

NARRATIVE: CASE EVENT DATE: 201604
